FAERS Safety Report 25468213 (Version 1)
Quarter: 2025Q2

REPORT INFORMATION
  Report Type: Spontaneous
  Country: FR (occurrence: FR)
  Receive Date: 20250623
  Receipt Date: 20250623
  Transmission Date: 20250716
  Serious: Yes (Hospitalization)
  Sender: MYLAN
  Company Number: None

PATIENT
  Age: 58 Year
  Sex: Female
  Weight: 82 kg

DRUGS (24)
  1. SERTRALINE [Suspect]
     Active Substance: SERTRALINE HYDROCHLORIDE
     Indication: Mixed anxiety and depressive disorder
  2. SERTRALINE [Suspect]
     Active Substance: SERTRALINE HYDROCHLORIDE
     Route: 048
  3. SERTRALINE [Suspect]
     Active Substance: SERTRALINE HYDROCHLORIDE
     Route: 048
  4. SERTRALINE [Suspect]
     Active Substance: SERTRALINE HYDROCHLORIDE
  5. LETROZOLE [Suspect]
     Active Substance: LETROZOLE
     Indication: Breast cancer metastatic
     Dates: start: 20240304, end: 20240822
  6. LETROZOLE [Suspect]
     Active Substance: LETROZOLE
     Route: 048
     Dates: start: 20240304, end: 20240822
  7. LETROZOLE [Suspect]
     Active Substance: LETROZOLE
     Route: 048
     Dates: start: 20240304, end: 20240822
  8. LETROZOLE [Suspect]
     Active Substance: LETROZOLE
     Dates: start: 20240304, end: 20240822
  9. KISQALI [Suspect]
     Active Substance: RIBOCICLIB SUCCINATE
     Indication: Breast cancer metastatic
     Dates: start: 20240314, end: 20240613
  10. KISQALI [Suspect]
     Active Substance: RIBOCICLIB SUCCINATE
     Route: 048
     Dates: start: 20240314, end: 20240613
  11. KISQALI [Suspect]
     Active Substance: RIBOCICLIB SUCCINATE
     Route: 048
     Dates: start: 20240314, end: 20240613
  12. KISQALI [Suspect]
     Active Substance: RIBOCICLIB SUCCINATE
     Dates: start: 20240314, end: 20240613
  13. GOSERELIN [Suspect]
     Active Substance: GOSERELIN
     Indication: Breast cancer metastatic
     Dosage: 3.6 MILLIGRAM, MONTHLY
     Dates: start: 20240304, end: 20240807
  14. GOSERELIN [Suspect]
     Active Substance: GOSERELIN
     Dosage: 3.6 MILLIGRAM, MONTHLY
     Route: 058
     Dates: start: 20240304, end: 20240807
  15. GOSERELIN [Suspect]
     Active Substance: GOSERELIN
     Dosage: 3.6 MILLIGRAM, MONTHLY
     Route: 058
     Dates: start: 20240304, end: 20240807
  16. GOSERELIN [Suspect]
     Active Substance: GOSERELIN
     Dosage: 3.6 MILLIGRAM, MONTHLY
     Dates: start: 20240304, end: 20240807
  17. TRIMEPRAZINE [Concomitant]
     Active Substance: TRIMEPRAZINE
     Indication: Sleep disorder
  18. TRIMEPRAZINE [Concomitant]
     Active Substance: TRIMEPRAZINE
     Route: 048
  19. TRIMEPRAZINE [Concomitant]
     Active Substance: TRIMEPRAZINE
     Route: 048
  20. TRIMEPRAZINE [Concomitant]
     Active Substance: TRIMEPRAZINE
  21. BROMAZEPAM [Concomitant]
     Active Substance: BROMAZEPAM
     Indication: Anxiety disorder
     Dosage: 1.5 MILLIGRAM, BID (3 MILLIGRAM, 1.5MG MORNING AND EVENING)
  22. BROMAZEPAM [Concomitant]
     Active Substance: BROMAZEPAM
     Dosage: 1.5 MILLIGRAM, BID (3 MILLIGRAM, 1.5MG MORNING AND EVENING)
     Route: 048
  23. BROMAZEPAM [Concomitant]
     Active Substance: BROMAZEPAM
     Dosage: 1.5 MILLIGRAM, BID (3 MILLIGRAM, 1.5MG MORNING AND EVENING)
     Route: 048
  24. BROMAZEPAM [Concomitant]
     Active Substance: BROMAZEPAM
     Dosage: 1.5 MILLIGRAM, BID (3 MILLIGRAM, 1.5MG MORNING AND EVENING)

REACTIONS (1)
  - Hepatic cytolysis [Recovered/Resolved]

NARRATIVE: CASE EVENT DATE: 20240613
